FAERS Safety Report 4638466-4 (Version None)
Quarter: 2005Q2

REPORT INFORMATION
  Report Type: 
  Country: None (occurrence: None)
  Receive Date: 20050418
  Receipt Date: 20050330
  Transmission Date: 20051028
  Serious: Yes (Hospitalization)
  Sender: FDA-Public Use
  Company Number: CA-2005-004606

PATIENT
  Age: 60 Year
  Sex: Male

DRUGS (2)
  1. BETASERON [Suspect]
     Indication: SECONDARY PROGRESSIVE MULTIPLE SCLEROSIS
     Dosage: 8 MIU, EVERY 2 D, SUBCUTANEOUS
     Route: 058
     Dates: start: 19991019, end: 20050329
  2. LASIX [Concomitant]

REACTIONS (5)
  - IMMUNE SYSTEM DISORDER [None]
  - IMPAIRED HEALING [None]
  - PAIN [None]
  - SKIN ULCER [None]
  - THROMBOSIS [None]
